FAERS Safety Report 8211156-7 (Version None)
Quarter: 2012Q1

REPORT INFORMATION
  Report Type: 
  Country: None (occurrence: None)
  Receive Date: 20120315
  Receipt Date: 20120307
  Transmission Date: 20120608
  Serious: Yes (Hospitalization, Other)
  Sender: FDA-Public Use
  Company Number: US-UCBSA-053022

PATIENT
  Age: 48 Year
  Sex: Female

DRUGS (3)
  1. METHOTREXATE [Concomitant]
     Indication: RHEUMATOID ARTHRITIS
     Route: 048
     Dates: start: 20110801
  2. CIMZIA [Suspect]
     Indication: RHEUMATOID ARTHRITIS
     Route: 058
     Dates: start: 20120218
  3. DIOVAN [Concomitant]
     Indication: HYPERTENSION
     Dosage: DOSE PER INTAKE: 1 TAB; THERAPY FROM: MANY YEARS
     Route: 048

REACTIONS (4)
  - CONCUSSION [None]
  - HEAD INJURY [None]
  - PHYSICAL ASSAULT [None]
  - LOSS OF CONSCIOUSNESS [None]
